FAERS Safety Report 10147212 (Version 2)
Quarter: 2014Q2

REPORT INFORMATION
  Report Type: Report from Study
  Country: CA (occurrence: CA)
  Receive Date: 20140501
  Receipt Date: 20140502
  Transmission Date: 20141212
  Serious: Yes (Death)
  Sender: FDA-Public Use
  Company Number: PHHY2014CA051536

PATIENT
  Age: 38 Year
  Sex: Male

DRUGS (7)
  1. CLOZARIL [Suspect]
     Indication: SCHIZOAFFECTIVE DISORDER
     Dosage: 150 MG, UNK
     Route: 048
     Dates: start: 201311, end: 201404
  2. OXYNEO [Concomitant]
     Dosage: 45 MG, TID
     Route: 048
  3. CIPRALEX//ESCITALOPRAM [Concomitant]
     Dosage: 10 MG, QAM
     Route: 048
  4. SEROQUEL [Concomitant]
     Dosage: UNK (25 BID + 50 HS)
  5. ATIVAN [Concomitant]
     Dosage: 1 MG, BID, PRN
     Route: 048
  6. EPIVAL [Concomitant]
     Dosage: 250 MG, QHS
     Route: 048
  7. AMOXICLAV [Concomitant]
     Dosage: 1 DF, DAILY
     Route: 048

REACTIONS (1)
  - Death [Fatal]
